FAERS Safety Report 11341704 (Version 3)
Quarter: 2016Q1

REPORT INFORMATION
  Report Type: Report from Study
  Country: US (occurrence: US)
  Receive Date: 20150805
  Receipt Date: 20160330
  Transmission Date: 20160525
  Serious: Yes (Hospitalization, Other)
  Sender: FDA-Public Use
  Company Number: US-ACTELION-A-NJ2015-121804

PATIENT
  Age: 78 Year
  Sex: Male

DRUGS (7)
  1. MELATONIN [Concomitant]
     Active Substance: MELATONIN
  2. XANAX [Concomitant]
     Active Substance: ALPRAZOLAM
  3. COUMADIN [Concomitant]
     Active Substance: WARFARIN SODIUM
  4. MACITENTAN [Suspect]
     Active Substance: MACITENTAN
     Indication: PULMONARY ARTERIAL HYPERTENSION
     Dosage: 10 MG, QD
     Route: 048
     Dates: start: 20140311
  5. TYVASO [Concomitant]
     Active Substance: TREPROSTINIL
  6. ADCIRCA [Concomitant]
     Active Substance: TADALAFIL
  7. DILTIAZEM [Concomitant]
     Active Substance: DILTIAZEM

REACTIONS (15)
  - Fluid retention [Unknown]
  - Pleural effusion [Unknown]
  - Herpes zoster [Unknown]
  - Bladder cancer [Unknown]
  - Radiotherapy [Unknown]
  - Cupulolithiasis [Unknown]
  - Aspiration pleural cavity [Unknown]
  - Balance disorder [Unknown]
  - Physical disability [Unknown]
  - Laceration [Unknown]
  - Chemotherapy [Unknown]
  - Skin abrasion [Unknown]
  - Wheezing [Unknown]
  - Haemorrhage urinary tract [Unknown]
  - Fall [Unknown]
